FAERS Safety Report 21161441 (Version 1)
Quarter: 2022Q3

REPORT INFORMATION
  Report Type: Spontaneous
  Country: US (occurrence: US)
  Receive Date: 20220802
  Receipt Date: 20220802
  Transmission Date: 20221027
  Serious: No
  Sender: FDA-Public Use
  Company Number: US-CLIENT CHANGE ME-2022-IMC-000768

PATIENT
  Sex: Female

DRUGS (1)
  1. KIMMTRAK [Suspect]
     Active Substance: TEBENTAFUSP-TEBN
     Indication: Product used for unknown indication
     Dosage: UNK
     Dates: start: 202108

REACTIONS (2)
  - Eye pain [Recovered/Resolved]
  - Swelling [Recovered/Resolved]
